FAERS Safety Report 18897246 (Version 1)
Quarter: 2021Q1

REPORT INFORMATION
  Report Type: Spontaneous
  Country: US (occurrence: US)
  Receive Date: 20210213
  Receipt Date: 20210213
  Transmission Date: 20210420
  Serious: No
  Sender: FDA-Public Use
  Company Number: None

PATIENT
  Age: 61 Year
  Sex: Female
  Weight: 143.1 kg

DRUGS (8)
  1. BAMLANIVIMAB. [Suspect]
     Active Substance: BAMLANIVIMAB
     Indication: COVID-19
     Dates: start: 20210213, end: 20210213
  2. PROAIR HFA [Concomitant]
     Active Substance: ALBUTEROL SULFATE
  3. Z PACK ANTIBIOTIC [Concomitant]
  4. VITAMIN D3 [Concomitant]
     Active Substance: CHOLECALCIFEROL
  5. ASPIRIN 81 MG [Concomitant]
     Active Substance: ASPIRIN
  6. PROTONIX 20MG [Concomitant]
  7. MAGNESIUM GLYCINATE 125 MG [Concomitant]
  8. PREDNISONE 40MG [Concomitant]
     Active Substance: PREDNISONE

REACTIONS (4)
  - Dysgeusia [None]
  - Somnolence [None]
  - Headache [None]
  - Oropharyngeal pain [None]

NARRATIVE: CASE EVENT DATE: 20210213
